FAERS Safety Report 7826587-4 (Version None)
Quarter: 2011Q4

REPORT INFORMATION
  Report Type: 
  Country: None (occurrence: None)
  Receive Date: 20111020
  Receipt Date: 20110815
  Transmission Date: 20120403
  Serious: No
  Sender: FDA-Public Use
  Company Number: US-MYLANLABS-2011S1017140

PATIENT
  Sex: Male

DRUGS (1)
  1. TAMSULOSIN HCL [Suspect]
     Indication: URINARY RETENTION
     Route: 048
     Dates: start: 20110701

REACTIONS (1)
  - MYALGIA [None]
